FAERS Safety Report 5018027-8 (Version None)
Quarter: 2006Q2

REPORT INFORMATION
  Report Type: 
  Country: None (occurrence: None)
  Receive Date: 20060605
  Receipt Date: 20060601
  Transmission Date: 20061013
  Serious: Yes (Disabling)
  Sender: FDA-Public Use
  Company Number: US-MERCK-0606USA00176

PATIENT
  Age: 69 Year
  Sex: Female
  Weight: 66 kg

DRUGS (2)
  1. FOSAMAX [Suspect]
     Indication: OSTEOPOROSIS
     Route: 048
     Dates: start: 19970101
  2. FOSAMAX [Suspect]
     Route: 048

REACTIONS (3)
  - BONE DISORDER [None]
  - CALCINOSIS [None]
  - OSTEONECROSIS [None]
